FAERS Safety Report 14569589 (Version 1)
Quarter: 2018Q1

REPORT INFORMATION
  Report Type: Spontaneous
  Country: US (occurrence: US)
  Receive Date: 20180224
  Receipt Date: 20180224
  Transmission Date: 20180509
  Serious: Yes (Other)
  Sender: FDA-Public Use
  Company Number: PHEH2018US006417

PATIENT
  Age: 45 Year
  Sex: Male

DRUGS (3)
  1. ZARXIO [Suspect]
     Active Substance: FILGRASTIM-SNDZ
     Dosage: 5 UG/KG, QD
     Route: 065
     Dates: start: 20180211
  2. ZARXIO [Suspect]
     Active Substance: FILGRASTIM-SNDZ
     Dosage: 5 UG/KG, QD
     Route: 065
     Dates: start: 20180212
  3. ZARXIO [Suspect]
     Active Substance: FILGRASTIM-SNDZ
     Indication: HAEMATOPOIETIC STEM CELL MOBILISATION
     Dosage: 5 UG/KG, BID
     Route: 065
     Dates: start: 20180208

REACTIONS (3)
  - Splenic rupture [Unknown]
  - Syncope [Unknown]
  - Hypotension [Unknown]

NARRATIVE: CASE EVENT DATE: 20180213
